FAERS Safety Report 9269667 (Version 2)
Quarter: 2013Q2

REPORT INFORMATION
  Report Type: Spontaneous
  Country: US (occurrence: US)
  Receive Date: 20130503
  Receipt Date: 20130517
  Transmission Date: 20140414
  Serious: Yes (Life-Threatening, Hospitalization, Disabling)
  Sender: FDA-Public Use
  Company Number: US-BAYER-2013-053297

PATIENT
  Age: 29 Year
  Sex: Female

DRUGS (5)
  1. YAZ [Suspect]
  2. GIANVI [Suspect]
  3. BEYAZ [Suspect]
  4. YASMIN [Suspect]
  5. OCELLA [Suspect]

REACTIONS (8)
  - Pulmonary embolism [None]
  - Pain [None]
  - General physical health deterioration [None]
  - Anxiety [None]
  - Anhedonia [None]
  - Injury [None]
  - Emotional distress [None]
  - Pain [None]
